FAERS Safety Report 5123490-8 (Version None)
Quarter: 2006Q4

REPORT INFORMATION
  Report Type: 
  Country: None (occurrence: None)
  Receive Date: 20061009
  Receipt Date: 20060929
  Transmission Date: 20070319
  Serious: Yes (Other)
  Sender: FDA-Public Use
  Company Number: US-MERCK-0609USA08559

PATIENT
  Age: 76 Year
  Sex: Female

DRUGS (12)
  1. FOSAMAX [Suspect]
     Indication: OSTEOPOROSIS
     Route: 048
     Dates: start: 20060820, end: 20060820
  2. CLONAZEPAM [Concomitant]
     Indication: SLEEP DISORDER
     Route: 065
  3. CORTEF [Concomitant]
     Route: 065
  4. DILTIAZEM HCL [Concomitant]
     Route: 065
  5. FLORINEF [Concomitant]
     Route: 065
  6. MEVACOR [Concomitant]
     Route: 048
  7. MOBIC [Concomitant]
     Route: 065
  8. NEXIUM [Concomitant]
     Route: 065
  9. TRIMETHOPRIM [Concomitant]
     Route: 065
  10. ASPIRIN [Concomitant]
     Route: 065
  11. CALCIUM CITRATE AND VITAMIN D (UNSPECIFIED) [Concomitant]
     Route: 065
  12. ADVANCED FORMULA CENTURY MULTIVITAMINS [Concomitant]
     Route: 065

REACTIONS (9)
  - ASTHENIA [None]
  - BALANCE DISORDER [None]
  - DEAFNESS UNILATERAL [None]
  - DIZZINESS [None]
  - FATIGUE [None]
  - HERPES SIMPLEX [None]
  - SNEEZING [None]
  - TINNITUS [None]
  - VOMITING [None]
